FAERS Safety Report 10974168 (Version 1)
Quarter: 2015Q1

REPORT INFORMATION
  Report Type: Spontaneous
  Country: US (occurrence: None)
  Receive Date: 20150226
  Receipt Date: 20150226
  Transmission Date: 20150721
  Serious: No
  Sender: FDA-Public Use
  Company Number: TAP2009Q00331

PATIENT
  Age: 68 Year
  Sex: Male
  Weight: 98.8 kg

DRUGS (3)
  1. ULORIC [Suspect]
     Active Substance: FEBUXOSTAT
     Indication: GOUT
     Route: 048
     Dates: start: 20090320, end: 20090324
  2. FLOMAX [Concomitant]
     Active Substance: TAMSULOSIN HYDROCHLORIDE
  3. INDOCIN SR (INDOMETACIN) [Concomitant]

REACTIONS (3)
  - Diarrhoea [None]
  - Dysphoria [None]
  - Nausea [None]

NARRATIVE: CASE EVENT DATE: 20090321
